FAERS Safety Report 9368988 (Version 5)
Quarter: 2013Q3

REPORT INFORMATION
  Report Type: Report from Study
  Country: BR (occurrence: BR)
  Receive Date: 20130626
  Receipt Date: 20130917
  Transmission Date: 20140515
  Serious: Yes (Hospitalization, Other)
  Sender: FDA-Public Use
  Company Number: PHHY2013BR023333

PATIENT
  Sex: Female
  Weight: 56 kg

DRUGS (7)
  1. GILENYA [Suspect]
     Indication: MULTIPLE SCLEROSIS
     Dosage: 0.5 MG, QD
     Route: 048
     Dates: start: 201301, end: 20130325
  2. GILENYA [Suspect]
     Dosage: 0.5 MG, QD
     Route: 048
  3. VITAMIN B COMPLEX [Concomitant]
  4. VITAMIN E [Concomitant]
  5. VITAMIN C [Concomitant]
  6. VITAMIN B12 [Concomitant]
  7. ASA [Concomitant]

REACTIONS (7)
  - Bradycardia [Not Recovered/Not Resolved]
  - Mitral valve disease [Not Recovered/Not Resolved]
  - Blood pressure fluctuation [Not Recovered/Not Resolved]
  - Heart rate irregular [Not Recovered/Not Resolved]
  - Brain hypoxia [Not Recovered/Not Resolved]
  - Pericarditis [Not Recovered/Not Resolved]
  - Dyspnoea [Unknown]
